FAERS Safety Report 18253359 (Version 3)
Quarter: 2020Q4

REPORT INFORMATION
  Report Type: Spontaneous
  Country: US (occurrence: US)
  Receive Date: 20200910
  Receipt Date: 20201202
  Transmission Date: 20210113
  Serious: No
  Sender: FDA-Public Use
  Company Number: US-PFIZER INC-2020348971

PATIENT
  Age: 55 Year
  Sex: Male

DRUGS (1)
  1. SUTENT [Suspect]
     Active Substance: SUNITINIB MALATE
     Indication: GASTROINTESTINAL STROMAL TUMOUR
     Dosage: 50 MG, CYCLIC (4 WEEKS, THEN 2 WEEKS OFF)
     Route: 048
     Dates: start: 202006

REACTIONS (18)
  - Muscle spasms [Unknown]
  - Insomnia [Unknown]
  - Fatigue [Unknown]
  - Foreign body sensation in eyes [Unknown]
  - Back pain [Unknown]
  - Malaise [Unknown]
  - Decreased appetite [Unknown]
  - Anxiety [Unknown]
  - Blister [Unknown]
  - Pain [Not Recovered/Not Resolved]
  - Stomatitis [Unknown]
  - Depression [Unknown]
  - Palmar-plantar erythrodysaesthesia syndrome [Not Recovered/Not Resolved]
  - Skin exfoliation [Not Recovered/Not Resolved]
  - Gait disturbance [Unknown]
  - Gingival discomfort [Unknown]
  - Skin disorder [Unknown]
  - Arthralgia [Unknown]
